FAERS Safety Report 23408261 (Version 3)
Quarter: 2024Q1

REPORT INFORMATION
  Report Type: Report from Study
  Country: US (occurrence: US)
  Receive Date: 20240117
  Receipt Date: 20240311
  Transmission Date: 20240409
  Serious: Yes (Death, Other)
  Sender: FDA-Public Use
  Company Number: US-ABBVIE-5590616

PATIENT
  Age: 71 Year
  Sex: Female

DRUGS (3)
  1. IMBRUVICA [Suspect]
     Active Substance: IBRUTINIB
     Indication: Chronic lymphocytic leukaemia
     Dosage: 420 MILLIGRAM
     Route: 048
     Dates: start: 201706
  2. IMBRUVICA [Suspect]
     Active Substance: IBRUTINIB
     Indication: Chronic lymphocytic leukaemia
     Route: 048
     Dates: start: 20210411
  3. SERTRALINE [Concomitant]
     Active Substance: SERTRALINE HYDROCHLORIDE
     Indication: Product used for unknown indication

REACTIONS (13)
  - Chronic lymphocytic leukaemia [Fatal]
  - White blood cell count increased [Recovering/Resolving]
  - Wrist fracture [Unknown]
  - Myocardial infarction [Unknown]
  - Increased tendency to bruise [Unknown]
  - Illness [Unknown]
  - Movement disorder [Unknown]
  - Dizziness [Unknown]
  - Vomiting [Unknown]
  - Balance disorder [Unknown]
  - Platelet count decreased [Unknown]
  - Cough [Unknown]
  - Red blood cell count decreased [Unknown]

NARRATIVE: CASE EVENT DATE: 20231205
